FAERS Safety Report 7586608-3 (Version None)
Quarter: 2011Q3

REPORT INFORMATION
  Report Type: 
  Country: None (occurrence: None)
  Receive Date: 20110701
  Receipt Date: 20110616
  Transmission Date: 20111222
  Serious: Yes (Other)
  Sender: FDA-Public Use
  Company Number: GB-WATSON-2011-09026

PATIENT
  Age: 70 Year
  Sex: Male
  Weight: 67 kg

DRUGS (2)
  1. SIMVASTATIN [Suspect]
     Indication: HYPERCHOLESTEROLAEMIA
     Dosage: 40 MG, DAILY
     Route: 048
     Dates: start: 20061001, end: 20070701
  2. DOXAZOSIN MESYLATE [Concomitant]
     Indication: BENIGN PROSTATIC HYPERPLASIA
     Dosage: 4 MG, DAILY
     Route: 065

REACTIONS (3)
  - DIARRHOEA [None]
  - RHINORRHOEA [None]
  - VOMITING [None]
